FAERS Safety Report 9887887 (Version 1)
Quarter: 2014Q1

REPORT INFORMATION
  Report Type: Spontaneous
  Country: GB (occurrence: None)
  Receive Date: 20140207
  Receipt Date: 20140207
  Transmission Date: 20141002
  Serious: Yes (Death, Other)
  Sender: FDA-Public Use
  Company Number: 2014AP000964

PATIENT
  Age: 59 Year
  Sex: Male

DRUGS (9)
  1. AMISULPRIDE [Suspect]
     Indication: SCHIZOPHRENIA
     Route: 048
  2. CITALOPRAM (CITALOPRAM) [Suspect]
     Indication: DEPRESSION
     Route: 048
  3. CLOZARIL [Suspect]
     Indication: SCHIZOPHRENIA
     Dates: start: 20100908
  4. LITHIUM (LITHIUM) [Suspect]
     Dates: start: 2010
  5. AMLODIPINE (AMLODIPINE) [Concomitant]
  6. AMOXICILLIN (AMOXICILLIN) [Concomitant]
  7. DOCUSATE (DOCUSATE) [Concomitant]
  8. SENNA /00142201/ (SENNA ALEXANDRIA) [Concomitant]
  9. SIMVASTATIN (SIMVASTATIN) [Concomitant]

REACTIONS (2)
  - Diabetes insipidus [None]
  - Hypernatraemia [None]
